FAERS Safety Report 16904146 (Version 1)
Quarter: 2019Q4

REPORT INFORMATION
  Report Type: Report from Study
  Country: None (occurrence: NL)
  Receive Date: 20191010
  Receipt Date: 20191010
  Transmission Date: 20200122
  Serious: Yes (Hospitalization, Other)
  Sender: FDA-Public Use
  Company Number: NL-ABBVIE-19K-114-2955082-00

PATIENT
  Sex: Female

DRUGS (1)
  1. DUODOPA [Suspect]
     Active Substance: CARBIDOPA\LEVODOPA
     Indication: PARKINSON^S DISEASE
     Dosage: MD 11 CD 2,7 ED 1
     Route: 050
     Dates: start: 20181212

REACTIONS (2)
  - Post procedural inflammation [Not Recovered/Not Resolved]
  - Foot deformity [Not Recovered/Not Resolved]
